FAERS Safety Report 8860617 (Version 2)
Quarter: 2013Q3

REPORT INFORMATION
  Report Type: Spontaneous
  Country: US (occurrence: US)
  Receive Date: 20121025
  Receipt Date: 20130723
  Transmission Date: 20140515
  Serious: Yes (Other)
  Sender: FDA-Public Use
  Company Number: US-ASTRAZENECA-2011SE00389

PATIENT
  Age: 55 Year
  Sex: Female

DRUGS (19)
  1. SEROQUEL [Suspect]
     Indication: BIPOLAR DISORDER
     Route: 048
  2. SEROQUEL [Suspect]
     Indication: BIPOLAR DISORDER
     Route: 048
     Dates: start: 2010, end: 201106
  3. NEXIUM [Suspect]
     Indication: GASTROOESOPHAGEAL REFLUX DISEASE
     Route: 048
     Dates: start: 2005, end: 201306
  4. GEMZAR [Suspect]
     Indication: CHEMOTHERAPY
     Route: 065
     Dates: start: 201205
  5. CISPLATAN [Suspect]
     Indication: CHEMOTHERAPY
     Route: 065
     Dates: start: 201205
  6. CHEMO DRUGS [Suspect]
     Route: 065
  7. A COUPLE OTHER THINGS [Suspect]
     Route: 065
  8. METOPROLOL [Concomitant]
     Dosage: DAILY DOSE: 50 MG, FREQUENCY: BID
  9. LISINOPRIL [Concomitant]
  10. PRAVASTATIN [Concomitant]
  11. LAMICTAL [Concomitant]
  12. XANAX [Concomitant]
     Indication: PANIC ATTACK
  13. ECOTRIN [Concomitant]
  14. PLAVIX [Concomitant]
  15. SPIRIVA [Concomitant]
  16. ADVAIR [Concomitant]
  17. MEGACE [Concomitant]
     Indication: APPETITE DISORDER
     Dates: start: 201205
  18. ZOFRAN [Concomitant]
     Indication: NAUSEA
     Dates: start: 201205
  19. COMPAZINE [Concomitant]
     Indication: NAUSEA
     Dates: start: 201205

REACTIONS (27)
  - Neoplasm malignant [Unknown]
  - Suicidal ideation [Unknown]
  - Metastases to lung [Unknown]
  - Metastatic lymphoma [Unknown]
  - Serotonin syndrome [Unknown]
  - Dysstasia [Unknown]
  - Cardiac disorder [Unknown]
  - Activities of daily living impaired [Unknown]
  - Abasia [Unknown]
  - Blood triglycerides abnormal [Unknown]
  - Blood cholesterol abnormal [Unknown]
  - Ventricular extrasystoles [Unknown]
  - Sleep disorder due to general medical condition, insomnia type [Unknown]
  - Gastrooesophageal reflux disease [Unknown]
  - Choking [Unknown]
  - Anxiety [Unknown]
  - Weight decreased [Unknown]
  - Drug intolerance [Unknown]
  - Visual acuity reduced [Unknown]
  - Insomnia [Unknown]
  - Malaise [Unknown]
  - Hyperhidrosis [Unknown]
  - Dyspnoea [Unknown]
  - Weight increased [Unknown]
  - Palpitations [Unknown]
  - Drug dose omission [Unknown]
  - Intentional drug misuse [Unknown]
